FAERS Safety Report 5038044-1 (Version None)
Quarter: 2006Q2

REPORT INFORMATION
  Report Type: 
  Country: None (occurrence: None)
  Receive Date: 20060601
  Receipt Date: 20060131
  Transmission Date: 20061013
  Serious: No
  Sender: FDA-Public Use
  Company Number: 2006PV007965

PATIENT
  Age: 54 Year
  Sex: Female

DRUGS (4)
  1. BYETTA [Suspect]
     Indication: DIABETES MELLITUS NON-INSULIN-DEPENDENT
     Dosage: 10 MCG; BID;SC, 5 MCG;BID;SC
     Route: 058
     Dates: start: 20051201, end: 20060101
  2. BYETTA [Suspect]
     Indication: DIABETES MELLITUS NON-INSULIN-DEPENDENT
     Dosage: 10 MCG; BID;SC, 5 MCG;BID;SC
     Route: 058
     Dates: start: 20060101
  3. AVANDIA [Concomitant]
  4. AVANDAMET [Concomitant]

REACTIONS (5)
  - DRY SKIN [None]
  - HYPERAESTHESIA [None]
  - INJECTION SITE ERYTHEMA [None]
  - INJECTION SITE PRURITUS [None]
  - INJECTION SITE ULCER [None]
